FAERS Safety Report 11221038 (Version 9)
Quarter: 2016Q3

REPORT INFORMATION
  Report Type: Spontaneous
  Country: CA (occurrence: CA)
  Receive Date: 20150626
  Receipt Date: 20160822
  Transmission Date: 20161109
  Serious: Yes (Other)
  Sender: FDA-Public Use
  Company Number: CA-ROCHE-1599654

PATIENT
  Age: 30 Year
  Sex: Female

DRUGS (14)
  1. XOLAIR [Suspect]
     Active Substance: OMALIZUMAB
     Dosage: UNK
     Route: 058
     Dates: start: 20160426
  2. XOLAIR [Suspect]
     Active Substance: OMALIZUMAB
     Dosage: UNK
     Route: 058
     Dates: start: 20160621
  3. SYMBICORT [Concomitant]
     Active Substance: BUDESONIDE\FORMOTEROL FUMARATE DIHYDRATE
     Indication: PRODUCT USED FOR UNKNOWN INDICATION
     Dosage: 8-12 INH/DAY
     Route: 055
  4. XOLAIR [Suspect]
     Active Substance: OMALIZUMAB
     Indication: ASTHMA
     Dosage: 300 MG, EVERY FOUR WEEKS
     Route: 058
     Dates: start: 20141029
  5. XOLAIR [Suspect]
     Active Substance: OMALIZUMAB
     Dosage: UNK
     Route: 058
     Dates: start: 20160331
  6. XOLAIR [Suspect]
     Active Substance: OMALIZUMAB
     Dosage: UNK
     Route: 058
     Dates: start: 20160524
  7. VENTOLIN [Concomitant]
     Active Substance: ALBUTEROL SULFATE
     Indication: PRODUCT USED FOR UNKNOWN INDICATION
     Route: 065
  8. PREDNISONE. [Concomitant]
     Active Substance: PREDNISONE
     Dosage: 50 MG, UNK (FOR 3 DAYS)
     Route: 065
     Dates: start: 20160323
  9. XOLAIR [Suspect]
     Active Substance: OMALIZUMAB
     Dosage: UNK
     Route: 058
     Dates: start: 20141126
  10. XOLAIR [Suspect]
     Active Substance: OMALIZUMAB
     Dosage: UNK
     Route: 058
     Dates: start: 20160301
  11. PREDNISONE. [Concomitant]
     Active Substance: PREDNISONE
     Dosage: FOR 5 DAYS AND FOR EXTRA 3 DAYS FOR A TOTAL OF 8 DAYS.
     Route: 065
  12. XOLAIR [Suspect]
     Active Substance: OMALIZUMAB
     Dosage: UNK
     Route: 058
     Dates: start: 20150219
  13. XOLAIR [Suspect]
     Active Substance: OMALIZUMAB
     Dosage: UNK
     Route: 058
     Dates: start: 20160719
  14. PREDNISONE. [Concomitant]
     Active Substance: PREDNISONE
     Indication: PHARYNGITIS STREPTOCOCCAL
     Route: 065
     Dates: start: 20160323

REACTIONS (21)
  - Ludwig angina [Unknown]
  - Joint dislocation [Unknown]
  - Oropharyngeal pain [Not Recovered/Not Resolved]
  - Fatigue [Recovered/Resolved]
  - Asthma [Unknown]
  - Nasopharyngitis [Not Recovered/Not Resolved]
  - Glossodynia [Unknown]
  - Pharyngitis streptococcal [Unknown]
  - Lung infection [Unknown]
  - Throat irritation [Unknown]
  - Palatal swelling [Unknown]
  - Hypertension [Unknown]
  - Aphonia [Unknown]
  - Decreased activity [Recovered/Resolved]
  - Ligament sprain [Unknown]
  - Sinusitis [Unknown]
  - Bronchitis [Unknown]
  - Dyspnoea [Unknown]
  - Mouth ulceration [Unknown]
  - Malaise [Unknown]
  - Swollen tongue [Unknown]

NARRATIVE: CASE EVENT DATE: 20141029
